FAERS Safety Report 5623455-3 (Version None)
Quarter: 2008Q1

REPORT INFORMATION
  Report Type: 
  Country: None (occurrence: None)
  Receive Date: 20080212
  Receipt Date: 20080130
  Transmission Date: 20080703
  Serious: Yes (Hospitalization)
  Sender: FDA-Public Use
  Company Number: US-ELI_LILLY_AND_COMPANY-US200802000429

PATIENT
  Sex: Female
  Weight: 126.98 kg

DRUGS (16)
  1. BYETTA [Suspect]
     Dosage: 5 UG, 2/D
     Route: 058
     Dates: start: 20060101, end: 20060101
  2. BYETTA [Suspect]
     Dosage: 10 UG, 2/D
     Route: 058
     Dates: start: 20060101, end: 20080114
  3. BYETTA [Suspect]
     Dosage: 10 UG, 2/D
     Route: 058
     Dates: start: 20080118, end: 20080122
  4. BYETTA [Suspect]
     Dosage: 10 UG, 2/D
     Route: 058
     Dates: start: 20080125
  5. GLUCOPHAGE [Concomitant]
     Dosage: 850 MG, 3/D
     Route: 048
     Dates: end: 20080114
  6. GLUCOPHAGE [Concomitant]
     Dosage: 850 MG, 3/D
     Route: 048
     Dates: start: 20080118
  7. ASPIRIN [Concomitant]
     Indication: PROPHYLAXIS
     Dosage: UNK, DAILY (1/D)
     Route: 048
  8. LISINOPRIL [Concomitant]
     Dosage: 5 MG, DAILY (1/D)
     Route: 048
  9. LYRICA [Concomitant]
     Indication: NEUROPATHY PERIPHERAL
     Dosage: 100 MG, 3/D
     Route: 048
  10. LIPITOR [Concomitant]
     Indication: BLOOD CHOLESTEROL
     Dosage: 40 MG, DAILY (1/D)
     Route: 048
     Dates: start: 20050101
  11. PRILOSEC [Concomitant]
     Dosage: 20 MG, DAILY (1/D)
     Route: 048
  12. K-DUR 10 [Concomitant]
     Dosage: 20 MEQ, UNKNOWN
  13. MAG-OX [Concomitant]
     Indication: ANAEMIA
     Dosage: 400 MG, UNKNOWN
  14. FERGON [Concomitant]
     Indication: ANAEMIA
     Dosage: UNK, UNKNOWN
  15. CALAN [Concomitant]
     Indication: HYPERTENSION
     Dosage: 240 MG, DAILY (1/D)
     Route: 048
  16. CENTRUM SILVER [Concomitant]
     Dosage: UNK, UNKNOWN

REACTIONS (9)
  - ASTHENIA [None]
  - HEADACHE [None]
  - MENINGITIS VIRAL [None]
  - NASOPHARYNGITIS [None]
  - NAUSEA [None]
  - OSTEOPENIA [None]
  - POST LUMBAR PUNCTURE SYNDROME [None]
  - PYREXIA [None]
  - VOMITING [None]
